FAERS Safety Report 10796178 (Version 3)
Quarter: 2015Q3

REPORT INFORMATION
  Report Type: Spontaneous
  Country: US (occurrence: US)
  Receive Date: 20150216
  Receipt Date: 20150901
  Transmission Date: 20151125
  Serious: Yes (Hospitalization, Other)
  Sender: FDA-Public Use
  Company Number: US-JNJFOC-20150205427

PATIENT
  Age: 48 Year
  Sex: Male
  Weight: 115.6 kg

DRUGS (8)
  1. TYLENOL EXTRA STRENGTH [Suspect]
     Active Substance: ACETAMINOPHEN
     Indication: PAIN IN EXTREMITY
     Route: 048
     Dates: start: 20140131, end: 20140203
  2. NAPROSYN [Suspect]
     Active Substance: NAPROXEN
     Indication: PAIN
     Route: 048
     Dates: start: 2009, end: 201402
  3. ALCOHOL. [Suspect]
     Active Substance: ALCOHOL
     Indication: PRODUCT USED FOR UNKNOWN INDICATION
     Dosage: DRANK A WHOLE BOTTLE OF WINE
     Route: 065
     Dates: start: 201402
  4. NORCO [Suspect]
     Active Substance: ACETAMINOPHEN\HYDROCODONE BITARTRATE
     Indication: PAIN IN EXTREMITY
     Route: 065
     Dates: start: 2009, end: 201402
  5. TYLENOL EXTRA STRENGTH [Suspect]
     Active Substance: ACETAMINOPHEN
     Indication: PAIN IN EXTREMITY
     Dosage: 4-6 PILLS, ON AND OFF
     Route: 048
     Dates: start: 2006
  6. VICODIN [Suspect]
     Active Substance: ACETAMINOPHEN\HYDROCODONE BITARTRATE
     Indication: PAIN
     Dosage: 10/325 MG PILLS
     Route: 048
     Dates: start: 2009, end: 201402
  7. AMBIEN [Concomitant]
     Active Substance: ZOLPIDEM TARTRATE
     Indication: INSOMNIA
     Dosage: AT BEDTIME
     Route: 065
     Dates: start: 2009
  8. VENTOLIN [Concomitant]
     Active Substance: ALBUTEROL SULFATE
     Indication: ASTHMA
     Dosage: 2 PUFFS AS NEEDED
     Route: 065
     Dates: start: 2009

REACTIONS (6)
  - Hypotension [None]
  - Urinary tract infection [None]
  - Binge drinking [None]
  - Dyspepsia [None]
  - Acute hepatic failure [Unknown]
  - Hepatitis B [None]

NARRATIVE: CASE EVENT DATE: 201402
